FAERS Safety Report 11815002 (Version 1)
Quarter: 2015Q4

REPORT INFORMATION
  Report Type: Spontaneous
  Country: US (occurrence: US)
  Receive Date: 20151209
  Receipt Date: 20151209
  Transmission Date: 20160305
  Serious: No
  Sender: FDA-Public Use
  Company Number: US-SA-2015SA149037

PATIENT
  Age: 65 Year
  Sex: Male

DRUGS (4)
  1. SOLOSTAR [Concomitant]
     Active Substance: DEVICE
  2. SOLOSTAR [Concomitant]
     Active Substance: DEVICE
     Dates: start: 20150914
  3. LANTUS SOLOSTAR [Concomitant]
     Active Substance: INSULIN GLARGINE
  4. TOUJEO [Suspect]
     Active Substance: INSULIN GLARGINE
     Dosage: DOSE:140 UNIT(S)
     Route: 065
     Dates: start: 20150914

REACTIONS (2)
  - Pyrexia [Recovered/Resolved]
  - Arthropod infestation [Recovered/Resolved]
